FAERS Safety Report 4715850-1 (Version None)
Quarter: 2005Q3

REPORT INFORMATION
  Report Type: 
  Country: None (occurrence: None)
  Receive Date: 20050718
  Receipt Date: 20040701
  Transmission Date: 20060218
  Serious: Yes (Hospitalization)
  Sender: FDA-Public Use
  Company Number: DE-ROCHE-372634

PATIENT
  Age: 33 Year
  Sex: Male
  Weight: 73 kg

DRUGS (46)
  1. DACLIZUMAB [Suspect]
     Route: 042
     Dates: start: 20040603, end: 20040603
  2. DACLIZUMAB [Suspect]
     Route: 042
     Dates: start: 20040617, end: 20040617
  3. DACLIZUMAB [Suspect]
     Route: 042
     Dates: start: 20040629, end: 20040629
  4. DACLIZUMAB [Suspect]
     Route: 042
     Dates: end: 20040727
  5. MYCOPHENOLATE MOFETIL [Suspect]
     Route: 048
     Dates: start: 20040608
  6. MYCOPHENOLATE MOFETIL [Suspect]
     Route: 048
     Dates: start: 20040602, end: 20040602
  7. MYCOPHENOLATE MOFETIL [Suspect]
     Route: 048
     Dates: start: 20040603
  8. MYCOPHENOLATE MOFETIL [Suspect]
     Route: 048
     Dates: start: 20040605
  9. MYCOPHENOLATE MOFETIL [Suspect]
     Route: 048
     Dates: start: 20040607, end: 20040607
  10. MYCOPHENOLATE MOFETIL [Suspect]
     Route: 048
     Dates: start: 20040608
  11. MYCOPHENOLATE MOFETIL [Suspect]
     Route: 048
     Dates: start: 20041120, end: 20050508
  12. MYCOPHENOLATE MOFETIL [Suspect]
     Route: 048
     Dates: start: 20050602
  13. MYCOPHENOLATE MOFETIL [Suspect]
     Route: 048
     Dates: start: 20050611
  14. MYCOPHENOLATE MOFETIL [Suspect]
     Route: 048
     Dates: start: 20050625
  15. SIROLIMUS [Suspect]
     Route: 048
     Dates: start: 20040622
  16. SIROLIMUS [Suspect]
     Route: 048
     Dates: start: 20040603, end: 20040603
  17. SIROLIMUS [Suspect]
     Route: 048
     Dates: start: 20040604, end: 20040604
  18. SIROLIMUS [Suspect]
     Route: 048
     Dates: start: 20040605, end: 20040605
  19. SIROLIMUS [Suspect]
     Route: 048
     Dates: start: 20040606
  20. SIROLIMUS [Suspect]
     Dosage: DOSAGE ADJUSTED ACCORDING TO TROUGH LEVEL.
     Route: 048
     Dates: start: 20040630
  21. PREDNISOLONE [Suspect]
     Route: 042
     Dates: start: 20040615
  22. PREDNISOLONE [Suspect]
     Route: 042
     Dates: start: 20040603, end: 20040603
  23. PREDNISOLONE [Suspect]
     Route: 042
     Dates: start: 20040605
  24. PREDNISOLONE [Suspect]
     Route: 042
     Dates: start: 20040608, end: 20040608
  25. PREDNISOLONE [Suspect]
     Route: 042
     Dates: start: 20040609
  26. PREDNISOLONE [Suspect]
     Route: 042
     Dates: start: 20040612
  27. PREDNISOLONE [Suspect]
     Route: 042
     Dates: start: 20040621
  28. PREDNISOLONE [Suspect]
     Route: 042
     Dates: start: 20040623
  29. PREDNISOLONE [Suspect]
     Route: 042
     Dates: start: 20040629
  30. AMPHOTERICIN B [Concomitant]
     Dates: start: 20040603, end: 20040701
  31. BISOPROLOL [Concomitant]
     Dates: start: 20040601
  32. CEFUROXIM [Concomitant]
     Dates: start: 20040603, end: 20040624
  33. DRUG UNKNOWN [Concomitant]
     Dosage: DRUG NAME REPORTED AS ^CERNEVID^.
     Dates: start: 20040604, end: 20040608
  34. DILTIAZEM [Concomitant]
     Dates: start: 20040603
  35. FUROSEMIDE [Concomitant]
     Dates: start: 20040601, end: 20040603
  36. NITRENDIPIN [Concomitant]
     Dates: start: 20040601, end: 20040603
  37. AMOXICILLIN [Concomitant]
     Dates: start: 20040827, end: 20040902
  38. ATORVASTATIN CALCIUM [Concomitant]
     Dates: start: 20040728, end: 20050522
  39. CANDESARTAN [Concomitant]
     Dates: start: 20040617
  40. CEFTAZIDIM [Concomitant]
     Dates: start: 20040624, end: 20040701
  41. CIPROFLOXACIN [Concomitant]
     Dates: start: 20040811
  42. COTRIM DS [Concomitant]
     Dates: start: 20040915
  43. ENOXAPARIN SODIUM [Concomitant]
     Dates: start: 20040707, end: 20040804
  44. NITROFURANTOIN [Concomitant]
     Dates: start: 20040818, end: 20040824
  45. ROFECOXIB [Concomitant]
     Dates: start: 20040707, end: 20040719
  46. SIMVASTATIN [Concomitant]
     Dates: start: 20040323, end: 20050507

REACTIONS (2)
  - PNEUMONIA [None]
  - URETERAL DISORDER [None]
